FAERS Safety Report 11263411 (Version 2)
Quarter: 2015Q3

REPORT INFORMATION
  Report Type: Report from Study
  Country: MX (occurrence: MX)
  Receive Date: 20150713
  Receipt Date: 20150726
  Transmission Date: 20151125
  Serious: Yes (Death, Other)
  Sender: FDA-Public Use
  Company Number: PHHY2015MX081873

PATIENT
  Age: 73 Year
  Sex: Male

DRUGS (2)
  1. CO-DIOVAN [Suspect]
     Active Substance: HYDROCHLOROTHIAZIDE\VALSARTAN
     Indication: HYPERTENSION
     Dosage: 1 DF, QD (STARTED ABOUT 9 YEARS AGO)
     Route: 048
  2. SIES [Concomitant]
     Active Substance: HIDROSMIN
     Indication: PERIPHERAL VASCULAR DISORDER
     Dosage: 1 DF, QD
     Route: 048

REACTIONS (7)
  - Bacterial infection [Unknown]
  - Varicose ulceration [Fatal]
  - Blood uric acid increased [Recovered/Resolved]
  - Escherichia infection [Unknown]
  - Moraxella infection [Unknown]
  - Septic shock [Fatal]
  - Infected skin ulcer [Unknown]

NARRATIVE: CASE EVENT DATE: 20150614
